FAERS Safety Report 18023342 (Version 1)
Quarter: 2020Q3

REPORT INFORMATION
  Report Type: Spontaneous
  Country: JP (occurrence: JP)
  Receive Date: 20200714
  Receipt Date: 20200714
  Transmission Date: 20201103
  Serious: Yes (Other)
  Sender: FDA-Public Use
  Company Number: JP-ALLERGAN-2026086US

PATIENT
  Sex: Male

DRUGS (2)
  1. COSPANON [Concomitant]
     Active Substance: FLOPROPIONE
     Route: 048
  2. URSODEOXYCHOLIC ACID ? BP [Suspect]
     Active Substance: URSODIOL
     Indication: PRODUCT USED FOR UNKNOWN INDICATION
     Dosage: 3 DF, QD
     Route: 048

REACTIONS (3)
  - Hepatic cancer [Unknown]
  - Constipation [Unknown]
  - Urticaria [Unknown]
